FAERS Safety Report 23258541 (Version 1)
Quarter: 2023Q4

REPORT INFORMATION
  Report Type: Spontaneous
  Country: US (occurrence: None)
  Receive Date: 20231201
  Receipt Date: 20231201
  Transmission Date: 20240109
  Serious: No
  Sender: FDA-Public Use
  Company Number: None

PATIENT
  Age: 72 Year
  Sex: Female

DRUGS (1)
  1. JAKAFI [Suspect]
     Active Substance: RUXOLITINIB
     Dosage: 30 TABLETS DAILY ORAL
     Route: 048
     Dates: start: 20171102, end: 20231124

REACTIONS (1)
  - Death [None]

NARRATIVE: CASE EVENT DATE: 20231124
